FAERS Safety Report 15631340 (Version 1)
Quarter: 2018Q4

REPORT INFORMATION
  Report Type: Spontaneous
  Country: US (occurrence: US)
  Receive Date: 20181112
  Receipt Date: 20181112
  Transmission Date: 20190205
  Serious: No
  Sender: FDA-Public Use
  Company Number: None

PATIENT
  Age: 70 Year
  Sex: Female

DRUGS (1)
  1. OCALIVA [Suspect]
     Active Substance: OBETICHOLIC ACID
     Indication: HYPERTENSION
     Dosage: ?          OTHER DOSE:5MG;?
     Route: 048
     Dates: start: 20180215

REACTIONS (2)
  - Malaise [None]
  - Muscle spasms [None]
